FAERS Safety Report 15365019 (Version 1)
Quarter: 2018Q3

REPORT INFORMATION
  Report Type: Spontaneous
  Country: NZ (occurrence: NZ)
  Receive Date: 20180910
  Receipt Date: 20180910
  Transmission Date: 20181010
  Serious: Yes (Other)
  Sender: FDA-Public Use
  Company Number: NZ-KADMON PHARMACEUTICALS, LLC-KAD-201809-01380

PATIENT
  Age: 45 Year
  Sex: Male

DRUGS (2)
  1. RIBAVIRIN. [Suspect]
     Active Substance: RIBAVIRIN
     Indication: HEPATITIS C
     Dosage: X2 TABS MANE (MORNING) AND X3 TABS NOCTE (NIGHT)
     Route: 048
  2. VIEKIRA PAK [Suspect]
     Active Substance: DASABUVIR\OMBITASVIR\PARITAPREVIR\RITONAVIR
     Indication: HEPATITIS C
     Route: 048

REACTIONS (4)
  - Irritability [Recovering/Resolving]
  - Homicidal ideation [Recovering/Resolving]
  - Anger [Recovering/Resolving]
  - Thinking abnormal [Recovering/Resolving]
